FAERS Safety Report 18622762 (Version 2)
Quarter: 2021Q2

REPORT INFORMATION
  Report Type: Spontaneous
  Country: US (occurrence: US)
  Receive Date: 20201216
  Receipt Date: 20210617
  Transmission Date: 20210717
  Serious: No
  Sender: FDA-Public Use
  Company Number: US-AMRING PHARMACEUTICALS INC.-2020US006413

PATIENT

DRUGS (1)
  1. SUCCINYLCHOLINE VIAL [Suspect]
     Active Substance: SUCCINYLCHOLINE
     Indication: MUSCLE RELAXANT THERAPY
     Dosage: UNK
     Route: 065
     Dates: start: 20201021

REACTIONS (4)
  - Therapeutic response delayed [Unknown]
  - Extra dose administered [Unknown]
  - Therapeutic product effect decreased [Unknown]
  - Delayed recovery from anaesthesia [Unknown]

NARRATIVE: CASE EVENT DATE: 20201021
